FAERS Safety Report 5245097-4 (Version None)
Quarter: 2007Q1

REPORT INFORMATION
  Report Type: 
  Country: None (occurrence: None)
  Receive Date: 20070223
  Receipt Date: 20070216
  Transmission Date: 20070707
  Serious: Yes (Disabling)
  Sender: FDA-Public Use
  Company Number: FR-AVENTIS-200710607FR

PATIENT
  Age: 33 Year
  Sex: Female

DRUGS (6)
  1. LOVENOX [Suspect]
     Route: 042
  2. LOVENOX [Suspect]
     Route: 058
  3. LOVENOX [Suspect]
     Route: 042
  4. LOVENOX [Suspect]
     Route: 042
  5. LOVENOX [Suspect]
     Route: 058
  6. LOVENOX [Suspect]
     Route: 042

REACTIONS (1)
  - SUBDURAL HAEMATOMA [None]
